FAERS Safety Report 8781951 (Version 3)
Quarter: 2012Q4

REPORT INFORMATION
  Report Type: Report from Study
  Country: FR (occurrence: FR)
  Receive Date: 20120913
  Receipt Date: 20120924
  Transmission Date: 20130627
  Serious: Yes (Hospitalization)
  Sender: FDA-Public Use
  Company Number: FR-MPIJNJ-2012-05634

PATIENT

DRUGS (20)
  1. VELCADE [Suspect]
     Indication: MANTLE CELL LYMPHOMA
     Dosage: 1.3 mg/m2, Cyclic
     Route: 058
     Dates: start: 20120724, end: 20120727
  2. VELCADE [Suspect]
     Dosage: UNK
     Route: 058
     Dates: end: 20120803
  3. MABTHERA [Suspect]
     Indication: MANTLE CELL LYMPHOMA
     Dosage: 37.5 mg/m2, Monthly
     Route: 042
     Dates: start: 20120724, end: 20120724
  4. LEVACT [Suspect]
     Indication: MANTLE CELL LYMPHOMA
     Dosage: 90 mg/m2, Cyclic
     Route: 042
     Dates: start: 20120724, end: 20120725
  5. DEXAMETHASONE [Suspect]
     Indication: MANTLE CELL LYMPHOMA
     Dosage: 40 mg, Cyclic
     Route: 042
     Dates: start: 20120725, end: 20120725
  6. APROVEL [Concomitant]
     Indication: HYPERTENSION
     Dosage: 300 mg, UNK
     Route: 048
  7. PRAVASTATINE                       /00880401/ [Concomitant]
     Indication: HYPERCHOLESTEROLAEMIA
     Dosage: 20 mg, UNK
     Route: 048
  8. FASTURTEC [Concomitant]
     Dosage: 15 mg, UNK
     Dates: start: 20120724, end: 20120724
  9. DAFALGAN                           /00020001/ [Concomitant]
     Dosage: 1000 mg, UNK
     Dates: start: 20120724, end: 20120724
  10. HYDROCORTISONE [Concomitant]
     Dosage: 100 mg, UNK
     Dates: start: 20120724, end: 20120724
  11. XYZAL [Concomitant]
     Dosage: 5 mg, UNK
     Dates: start: 20120724, end: 20120724
  12. INEXIUM /01479302/ [Concomitant]
     Dosage: 20 mg, UNK
  13. VALACICLOVIR [Concomitant]
     Dosage: 500 mg, UNK
  14. TOPALGIC                           /00599202/ [Concomitant]
     Dosage: 50 mg, UNK
  15. FORLAX [Concomitant]
     Indication: CONSTIPATION
  16. PARACETAMOL [Concomitant]
     Indication: PAIN
     Dosage: 2 UNK, UNK
  17. PARACETAMOL [Concomitant]
     Indication: PYREXIA
  18. PRIMPERAN                          /00041901/ [Concomitant]
     Indication: NAUSEA
     Dosage: 10 mg, UNK
  19. FUNGIZONE [Concomitant]
  20. GRANOCYTE 34 [Suspect]
     Dosage: UNK
     Route: 058
     Dates: start: 20120804, end: 20120808

REACTIONS (3)
  - Pyrexia [Recovered/Resolved]
  - Hypersensitivity [Recovered/Resolved]
  - Bronchopneumopathy [Recovered/Resolved]
